FAERS Safety Report 6468969-1 (Version None)
Quarter: 2009Q4

REPORT INFORMATION
  Report Type: 
  Country: None (occurrence: None)
  Receive Date: 20091203
  Receipt Date: 20080610
  Transmission Date: 20100525
  Serious: Yes (Disabling, Other)
  Sender: FDA-Public Use
  Company Number: US-ELI_LILLY_AND_COMPANY-US200604000132

PATIENT
  Sex: Male

DRUGS (20)
  1. PROZAC [Suspect]
     Indication: DEPRESSION
     Dosage: 60 MG, DAILY (1/D)
     Dates: start: 19960101, end: 20060501
  2. PROZAC [Suspect]
     Dosage: 20 MG, DAILY (1/D)
  3. PROZAC [Suspect]
     Dosage: 40 MG, DAILY (1/D)
  4. PROZAC [Suspect]
     Dates: start: 19960101, end: 20000101
  5. CYMBALTA [Suspect]
     Indication: DEPRESSION
     Dosage: 60 MG, DAILY (1/D)
     Dates: start: 20060501, end: 20060601
  6. CYMBALTA [Suspect]
     Dosage: 30 MG, DAILY (1/D)
  7. XANAX                                   /USA/ [Concomitant]
     Indication: ANXIETY
     Dosage: 1 MG, DAILY (1/D)
  8. DOXEPIN HCL [Concomitant]
     Indication: SLEEP DISORDER
     Dosage: UNK, UNK
  9. ZYRTEC [Concomitant]
  10. BUSPAR                                  /AUS/ [Concomitant]
  11. AMBIEN [Concomitant]
     Indication: INSOMNIA
  12. SEREVENT [Concomitant]
  13. FLOVENT [Concomitant]
     Dosage: UNK, 2/D
  14. NYSTATIN [Concomitant]
     Dates: start: 20050101
  15. FORADIL [Concomitant]
  16. DEPO-MEDROL [Concomitant]
     Dosage: 120 MG, UNK
  17. ROCEPHIN [Concomitant]
     Dosage: 1 G, UNK
  18. LISINOPRIL [Concomitant]
     Indication: BLOOD PRESSURE
     Dosage: UNK, DAILY (1/D)
  19. PAXIL [Concomitant]
     Indication: DEPRESSION
     Dosage: UNK, DAILY (1/D)
     Dates: start: 20060101
  20. LEXAPRO [Concomitant]

REACTIONS (38)
  - ASTHMA [None]
  - BRONCHITIS [None]
  - CANDIDIASIS [None]
  - CARDIAC DISORDER [None]
  - DEPRESSION [None]
  - DISABILITY [None]
  - DRUG HYPERSENSITIVITY [None]
  - DRUG INEFFECTIVE [None]
  - DYSPNOEA [None]
  - ECZEMA [None]
  - FEELING ABNORMAL [None]
  - FLANK PAIN [None]
  - HAEMOPTYSIS [None]
  - HEADACHE [None]
  - HEART RATE INCREASED [None]
  - HEPATIC ENZYME INCREASED [None]
  - HYPERGAMMAGLOBULINAEMIA [None]
  - HYPERHIDROSIS [None]
  - HYPERTENSION [None]
  - INFLUENZA LIKE ILLNESS [None]
  - INSOMNIA [None]
  - LIP SWELLING [None]
  - LUNG DISORDER [None]
  - LYMPH NODE PAIN [None]
  - LYMPHADENOPATHY [None]
  - MALAISE [None]
  - MUSCLE ATROPHY [None]
  - MUSCULAR WEAKNESS [None]
  - NAUSEA [None]
  - PLEURISY [None]
  - PRODUCTIVE COUGH [None]
  - PRURITUS [None]
  - RASH [None]
  - RESPIRATORY DISTRESS [None]
  - ROTATOR CUFF SYNDROME [None]
  - SEXUAL DYSFUNCTION [None]
  - SKIN EXFOLIATION [None]
  - VASCULITIS [None]
